FAERS Safety Report 22930239 (Version 2)
Quarter: 2023Q4

REPORT INFORMATION
  Report Type: Report from Study
  Country: US (occurrence: US)
  Receive Date: 20230911
  Receipt Date: 20231027
  Transmission Date: 20240110
  Serious: Yes (Death, Other)
  Sender: FDA-Public Use
  Company Number: US-OTSUKA-2022_010703

PATIENT
  Age: 55 Year
  Sex: Female
  Weight: 64.3 kg

DRUGS (17)
  1. TOLVAPTAN [Suspect]
     Active Substance: TOLVAPTAN
     Indication: Congenital cystic kidney disease
     Dosage: 60 MG, QD
     Route: 065
  2. TOLVAPTAN [Suspect]
     Active Substance: TOLVAPTAN
     Dosage: 30 MG, QD
     Route: 065
  3. TOLVAPTAN [Suspect]
     Active Substance: TOLVAPTAN
     Dosage: UNK
     Route: 065
  4. TOLVAPTAN [Suspect]
     Active Substance: TOLVAPTAN
     Dosage: 45 MG, QD (UPON AWAKING IN THE MORNING)
     Route: 065
     Dates: start: 2022
  5. TOLVAPTAN [Suspect]
     Active Substance: TOLVAPTAN
     Dosage: 15 MG, QD (8 H LATER)
     Route: 065
     Dates: start: 2022
  6. TOLVAPTAN [Suspect]
     Active Substance: TOLVAPTAN
     Dosage: UNK
     Route: 065
     Dates: start: 201902
  7. TOLVAPTAN [Suspect]
     Active Substance: TOLVAPTAN
     Dosage: UNK
     Route: 065
  8. CALCIUM CARBONATE [Concomitant]
     Active Substance: CALCIUM CARBONATE
     Indication: Product used for unknown indication
     Dosage: 600 MG, QD
     Route: 048
  9. COREG [Concomitant]
     Active Substance: CARVEDILOL
     Indication: Product used for unknown indication
     Dosage: 25 MG, BID (WITH MEALS)
     Route: 048
     Dates: start: 20230313
  10. VITAMIN D3 [Concomitant]
     Active Substance: CHOLECALCIFEROL
     Indication: Product used for unknown indication
     Dosage: 50 ?G, QD (2000 UNIT)
     Route: 065
  11. PROLIA [Concomitant]
     Active Substance: DENOSUMAB
     Indication: Product used for unknown indication
     Dosage: INJECT 1 ML (60 MG TOTAL) UNDER THE SKIN EVERY SIX MONTHS
     Route: 058
     Dates: start: 20220616
  12. DIAZEPAM [Concomitant]
     Active Substance: DIAZEPAM
     Indication: Magnetic resonance imaging
     Dosage: UNK, AS NECESSARY
     Route: 048
     Dates: start: 20220603
  13. FERROUS SULFATE [Concomitant]
     Active Substance: FERROUS SULFATE
     Indication: Product used for unknown indication
     Dosage: 1 DF, QD
     Route: 048
     Dates: start: 20230131
  14. ALLEGRA [Concomitant]
     Active Substance: FEXOFENADINE HYDROCHLORIDE
     Indication: Hypersensitivity
     Dosage: 1 DF, AS NECESSARY
     Route: 048
  15. ZESTRIL [Concomitant]
     Active Substance: LISINOPRIL
     Indication: Product used for unknown indication
     Dosage: 5 MG, QD
     Route: 048
     Dates: start: 20221107
  16. SODIUM BICARBONATE [Concomitant]
     Active Substance: SODIUM BICARBONATE
     Indication: Product used for unknown indication
     Dosage: 650 MG, BID
     Route: 048
     Dates: start: 20230407
  17. NP THYROID [Concomitant]
     Active Substance: LEVOTHYROXINE\LIOTHYRONINE
     Indication: Product used for unknown indication
     Dosage: (TAKE 60-120 MG BY MOUTH DAILY. 120 MG ON WED AND SAT AND 60 MG REMAINING DAYS OF WEEK)
     Route: 048
     Dates: start: 20220928

REACTIONS (52)
  - Pulseless electrical activity [Fatal]
  - Cardiac arrest [Fatal]
  - Procedural haemorrhage [Fatal]
  - Haemoperitoneum [Fatal]
  - Congenital cystic kidney disease [Fatal]
  - Polycystic liver disease [Fatal]
  - Pulmonary congestion [Unknown]
  - Pleural effusion [Unknown]
  - Pulmonary valve disease [Unknown]
  - Aortic arteriosclerosis [Unknown]
  - Arteriosclerosis coronary artery [Unknown]
  - Myocarditis [Unknown]
  - Biopsy bone [Unknown]
  - Osteoporosis postmenopausal [Unknown]
  - Sclerotherapy [Unknown]
  - Portal hypertension [Unknown]
  - Varices oesophageal [Unknown]
  - Gastric varices [Unknown]
  - Uterine leiomyoma [Unknown]
  - Haemorrhagic cyst [Unknown]
  - Haematuria [Unknown]
  - Renal impairment [Not Recovered/Not Resolved]
  - Monocyte count decreased [Unknown]
  - Blood parathyroid hormone increased [Not Recovered/Not Resolved]
  - Blood 1,25-dihydroxycholecalciferol decreased [Unknown]
  - Prothrombin time prolonged [Unknown]
  - Blood chloride increased [Not Recovered/Not Resolved]
  - Low density lipoprotein increased [Unknown]
  - Blood iron decreased [Unknown]
  - Transferrin saturation decreased [Unknown]
  - Oesophagogastroduodenoscopy [Unknown]
  - Early satiety [Unknown]
  - Discomfort [Unknown]
  - Hypersplenism [Unknown]
  - Muscle atrophy [Unknown]
  - Increased tendency to bruise [Unknown]
  - Haematocrit decreased [Recovered/Resolved]
  - Platelet count decreased [Not Recovered/Not Resolved]
  - Red blood cell count decreased [Recovered/Resolved]
  - Cystatin C increased [Unknown]
  - Blood cholesterol increased [Unknown]
  - Blood urea increased [Recovering/Resolving]
  - Haemoglobin decreased [Not Recovered/Not Resolved]
  - Blood creatinine increased [Recovering/Resolving]
  - Glomerular filtration rate decreased [Recovering/Resolving]
  - Blood glucose increased [Unknown]
  - Asthenia [Unknown]
  - Constipation [Unknown]
  - Blood uric acid increased [Not Recovered/Not Resolved]
  - Decreased appetite [Unknown]
  - Product dose omission issue [Unknown]
  - Therapy interrupted [Unknown]

NARRATIVE: CASE EVENT DATE: 20210921
